FAERS Safety Report 10936214 (Version 3)
Quarter: 2018Q1

REPORT INFORMATION
  Report Type: Report from Study
  Country: BR (occurrence: BR)
  Receive Date: 20150320
  Receipt Date: 20180320
  Transmission Date: 20180508
  Serious: Yes (Hospitalization)
  Sender: FDA-Public Use
  Company Number: PHHY2015BR033620

PATIENT
  Sex: Female
  Weight: 72 kg

DRUGS (1)
  1. ACLASTA [Suspect]
     Active Substance: ZOLEDRONIC ACID
     Indication: OSTEOPOROSIS
     Dosage: 5 MG, Q12MO
     Route: 042
     Dates: start: 201311

REACTIONS (6)
  - Coagulopathy [Recovering/Resolving]
  - Insomnia [Recovering/Resolving]
  - Spinal pain [Recovering/Resolving]
  - Skin discolouration [Unknown]
  - Pain [Recovering/Resolving]
  - Fear [Recovering/Resolving]
